FAERS Safety Report 6275736-0 (Version None)
Quarter: 2009Q3

REPORT INFORMATION
  Report Type: 
  Country: None (occurrence: None)
  Receive Date: 20090721
  Receipt Date: 20090714
  Transmission Date: 20100115
  Serious: Yes (Other)
  Sender: FDA-Public Use
  Company Number: PHHY2009CA29635

PATIENT
  Age: 54 Year
  Sex: Female

DRUGS (1)
  1. RASILEZ [Suspect]
     Dosage: UNK

REACTIONS (1)
  - CHEST PAIN [None]
